FAERS Safety Report 8834100 (Version 2)
Quarter: 2012Q4

REPORT INFORMATION
  Report Type: 
  Country: NL (occurrence: NL)
  Receive Date: 20121010
  Receipt Date: 20121128
  Transmission Date: 20130627
  Serious: Yes (Death)
  Sender: FDA-Public Use
  Company Number: PHHY2012NL089347

PATIENT
  Age: 81 Year
  Sex: Male

DRUGS (5)
  1. ZOMETA [Suspect]
     Indication: METASTASES TO BONE
     Dosage: 4 mg/ 100 ml once per 21 days
  2. ZOMETA [Suspect]
     Dosage: 4 mg/ 100 ml once per 21 days
     Dates: start: 20120831
  3. ZOMETA [Suspect]
     Dosage: 4 mg/ 100 ml once per 21 days
     Dates: start: 20120920
  4. LUCRIN [Concomitant]
     Dosage: 11.25 mg, once every 3 weeks
     Route: 030
  5. FENTANYL [Concomitant]
     Dosage: 25 mg, once every 3 days

REACTIONS (2)
  - Malignant neoplasm progression [Fatal]
  - Terminal state [Fatal]
